FAERS Safety Report 16100756 (Version 4)
Quarter: 2019Q4

REPORT INFORMATION
  Report Type: Report from Study
  Country: US (occurrence: US)
  Receive Date: 20190321
  Receipt Date: 20191218
  Transmission Date: 20200122
  Serious: Yes (Other)
  Sender: FDA-Public Use
  Company Number: PHEH2019US012237

PATIENT
  Sex: Female

DRUGS (2)
  1. AIMOVIG [Suspect]
     Active Substance: ERENUMAB-AOOE
     Indication: PRODUCT USED FOR UNKNOWN INDICATION
     Dosage: UNK
     Route: 065
  2. COSENTYX [Suspect]
     Active Substance: SECUKINUMAB
     Indication: PRODUCT USED FOR UNKNOWN INDICATION
     Dosage: UNK
     Route: 065

REACTIONS (9)
  - Disease recurrence [Unknown]
  - Cough [Unknown]
  - Condition aggravated [Unknown]
  - Arthritis [Unknown]
  - Therapy non-responder [Unknown]
  - Paralysis [Unknown]
  - Cerebrovascular accident [Unknown]
  - Aneurysm [Unknown]
  - Gait disturbance [Unknown]
